FAERS Safety Report 6505790-X (Version None)
Quarter: 2009Q4

REPORT INFORMATION
  Report Type: 
  Country: None (occurrence: None)
  Receive Date: 20091218
  Receipt Date: 20091209
  Transmission Date: 20100525
  Serious: Yes (Hospitalization)
  Sender: FDA-Public Use
  Company Number: FR-ABBOTT-09P-056-0613673-00

PATIENT
  Sex: Male

DRUGS (22)
  1. NORVIR [Suspect]
     Indication: HIV INFECTION
     Route: 048
     Dates: start: 20081218
  2. ANSATIPINE [Suspect]
     Indication: DRUG USE FOR UNKNOWN INDICATION
     Route: 048
     Dates: start: 20081101
  3. ANSATIPINE [Suspect]
     Route: 048
     Dates: start: 20090701
  4. ANSATIPINE [Suspect]
     Route: 048
     Dates: start: 20091016, end: 20091105
  5. ANSATIPINE [Suspect]
     Route: 048
     Dates: start: 20091119
  6. TRUVADA [Suspect]
     Indication: HIV INFECTION
     Route: 048
     Dates: start: 20081119
  7. PREZISTA [Suspect]
     Indication: HIV INFECTION
     Route: 048
     Dates: start: 20081218
  8. CIFLOX [Concomitant]
     Indication: DRUG USE FOR UNKNOWN INDICATION
     Dates: start: 20081101
  9. CIFLOX [Concomitant]
     Dates: start: 20090701
  10. CLARITHROMYCIN [Concomitant]
     Indication: DRUG USE FOR UNKNOWN INDICATION
     Dates: start: 20081101
  11. CLARITHROMYCIN [Concomitant]
     Dates: start: 20090701
  12. BACTRIM [Concomitant]
     Indication: DRUG USE FOR UNKNOWN INDICATION
     Dates: start: 20081101
  13. BACTRIM [Concomitant]
     Dates: start: 20090701
  14. TRIFLUCAN [Concomitant]
     Indication: DRUG USE FOR UNKNOWN INDICATION
     Dates: start: 20081101
  15. TRIFLUCAN [Concomitant]
     Dates: start: 20090701
  16. MYAMBUTOL [Concomitant]
     Indication: DRUG USE FOR UNKNOWN INDICATION
     Dates: start: 20090701
  17. AMIKLIN [Concomitant]
     Indication: DRUG USE FOR UNKNOWN INDICATION
     Dates: start: 20090701
  18. IZILOX [Concomitant]
     Indication: DRUG USE FOR UNKNOWN INDICATION
     Dates: start: 20090801
  19. ASCORBIC ACID [Concomitant]
     Indication: DRUG USE FOR UNKNOWN INDICATION
  20. DEROXAT [Concomitant]
     Indication: DRUG USE FOR UNKNOWN INDICATION
  21. THERALENE [Concomitant]
     Indication: DRUG USE FOR UNKNOWN INDICATION
  22. VALIUM [Concomitant]
     Indication: DRUG USE FOR UNKNOWN INDICATION

REACTIONS (3)
  - AGRANULOCYTOSIS [None]
  - NEUTROPENIA [None]
  - PYREXIA [None]
